FAERS Safety Report 13545619 (Version 3)
Quarter: 2017Q2

REPORT INFORMATION
  Report Type: Spontaneous
  Country: US (occurrence: US)
  Receive Date: 20170515
  Receipt Date: 20170628
  Transmission Date: 20170830
  Serious: No
  Sender: FDA-Public Use
  Company Number: US-PFIZER INC-2017206494

PATIENT
  Age: 19 Year
  Sex: Male
  Weight: 90.72 kg

DRUGS (2)
  1. ADVIL [Suspect]
     Active Substance: IBUPROFEN
     Indication: WISDOM TEETH REMOVAL
  2. ADVIL [Suspect]
     Active Substance: IBUPROFEN
     Indication: PROCEDURAL PAIN
     Dosage: 800 MG, 4 LIQUIGELS, 3X/DAY
     Route: 048
     Dates: start: 20170502, end: 201705

REACTIONS (6)
  - Dizziness [Recovered/Resolved]
  - Overdose [Recovered/Resolved]
  - Poor quality drug administered [Recovered/Resolved]
  - Incorrect product storage [Recovered/Resolved]
  - Product odour abnormal [Recovered/Resolved]
  - Nausea [Recovered/Resolved]

NARRATIVE: CASE EVENT DATE: 20170502
